FAERS Safety Report 11709230 (Version 1)
Quarter: 2015Q4

REPORT INFORMATION
  Report Type: Spontaneous
  Country: US (occurrence: US)
  Receive Date: 20151104
  Receipt Date: 20151104
  Transmission Date: 20160304
  Serious: No
  Sender: FDA-Public Use
  Company Number: US-ELI_LILLY_AND_COMPANY-US201012002702

PATIENT
  Age: 55 Year
  Sex: Female

DRUGS (1)
  1. FORTEO [Suspect]
     Active Substance: TERIPARATIDE
     Indication: OSTEOPOROSIS
     Dosage: UNK, UNKNOWN

REACTIONS (8)
  - Mood altered [Unknown]
  - Chills [Unknown]
  - Emotional disorder [Unknown]
  - Malaise [Unknown]
  - Injection site bruising [Unknown]
  - Fatigue [Unknown]
  - Lethargy [Unknown]
  - Pain [Unknown]

NARRATIVE: CASE EVENT DATE: 20110831
